FAERS Safety Report 9961664 (Version 1)
Quarter: 2014Q1

REPORT INFORMATION
  Report Type: Report from Study
  Country: US (occurrence: US)
  Receive Date: 20140305
  Receipt Date: 20140305
  Transmission Date: 20141002
  Serious: No
  Sender: FDA-Public Use
  Company Number: US-ABBVIE-13P-163-1114451-00

PATIENT
  Age: 32 Year
  Sex: Male

DRUGS (4)
  1. HUMIRA [Suspect]
     Indication: PSORIASIS
     Dates: start: 20130406
  2. UNKNOWN MEDICATION [Concomitant]
     Indication: DYSPEPSIA
  3. UNKNOWN MEDICATION [Concomitant]
     Indication: HYPERTENSION
  4. UNKNOWN MEDICATION [Concomitant]
     Indication: HYPERSENSITIVITY

REACTIONS (2)
  - Device malfunction [Recovered/Resolved]
  - Injection site haemorrhage [Recovered/Resolved]
